FAERS Safety Report 17770313 (Version 1)
Quarter: 2020Q2

REPORT INFORMATION
  Report Type: Report from Study
  Country: US (occurrence: US)
  Receive Date: 20200512
  Receipt Date: 20200512
  Transmission Date: 20200714
  Serious: Yes (Hospitalization, Other)
  Sender: FDA-Public Use
  Company Number: US-GILEAD-2020-0464305

PATIENT
  Age: 11 Year
  Sex: Male

DRUGS (2)
  1. AZTREONAM LYSINE [Suspect]
     Active Substance: AZTREONAM LYSINE
     Indication: CYSTIC FIBROSIS
     Dosage: 75 MG, TID
     Route: 055
     Dates: start: 20170811
  2. AMOXICILLIN + CLAV. POTASSIUM [Concomitant]
     Active Substance: AMOXICILLIN\CLAVULANATE POTASSIUM

REACTIONS (5)
  - Haemorrhage [Not Recovered/Not Resolved]
  - Tooth fracture [Unknown]
  - Cardio-respiratory arrest [Unknown]
  - Anaesthetic complication [Unknown]
  - Tracheal injury [Unknown]

NARRATIVE: CASE EVENT DATE: 202004
